FAERS Safety Report 15415643 (Version 1)
Quarter: 2018Q3

REPORT INFORMATION
  Report Type: Spontaneous
  Country: JP (occurrence: JP)
  Receive Date: 20180922
  Receipt Date: 20180922
  Transmission Date: 20181010
  Serious: Yes (Death, Hospitalization)
  Sender: FDA-Public Use
  Company Number: JP-AMGEN-JPNSP2018132232

PATIENT
  Sex: Male
  Weight: 51 kg

DRUGS (8)
  1. RANMARK [Suspect]
     Active Substance: DENOSUMAB
     Indication: LUNG NEOPLASM MALIGNANT
     Dosage: 120 MG, UNK
     Route: 058
     Dates: start: 20140613
  2. WARFARIN [Concomitant]
     Active Substance: WARFARIN
     Indication: ATRIAL FIBRILLATION
     Dosage: 2 MG, UNK
     Route: 048
     Dates: start: 20140404
  3. MAGNESIUM OXIDE. [Concomitant]
     Active Substance: MAGNESIUM OXIDE
     Indication: GASTRIC ULCER
     Dosage: 700 MG, UNK
     Route: 048
     Dates: start: 20140613
  4. ALLELOCK [Concomitant]
     Active Substance: OLOPATADINE HYDROCHLORIDE
     Indication: HYPERSENSITIVITY
     Dosage: 10 MG, UNK
     Route: 048
     Dates: start: 20140417, end: 20150207
  5. NEXIUM [Concomitant]
     Active Substance: ESOMEPRAZOLE MAGNESIUM
     Indication: GASTRIC ULCER
     Dosage: 20 MG, UNK
     Route: 048
     Dates: start: 20140402
  6. DECADRON [Concomitant]
     Active Substance: DEXAMETHASONE
     Indication: LUNG NEOPLASM MALIGNANT
     Dosage: 0.5 MG, UNK
     Route: 048
     Dates: start: 20140502, end: 20150501
  7. TARCEVA [Concomitant]
     Active Substance: ERLOTINIB HYDROCHLORIDE
     Indication: LUNG NEOPLASM MALIGNANT
     Dosage: 150 MG, UNK
     Route: 048
     Dates: start: 20140403
  8. EMEND [Concomitant]
     Active Substance: APREPITANT
     Indication: LUNG NEOPLASM MALIGNANT
     Dosage: 80 MG, UNK
     Route: 048
     Dates: start: 20140502, end: 20141218

REACTIONS (2)
  - Myocardial infarction [Fatal]
  - Osteonecrosis of jaw [Unknown]

NARRATIVE: CASE EVENT DATE: 20151118
